FAERS Safety Report 5429159-4 (Version None)
Quarter: 2007Q3

REPORT INFORMATION
  Report Type: 
  Country: None (occurrence: None)
  Receive Date: 20070829
  Receipt Date: 20070815
  Transmission Date: 20080115
  Serious: Yes (Hospitalization, Other)
  Sender: FDA-Public Use
  Company Number: US-ELI_LILLY_AND_COMPANY-US200708003109

PATIENT
  Age: 68 Year
  Sex: Female

DRUGS (4)
  1. CYMBALTA [Suspect]
     Indication: AFFECTIVE DISORDER
     Dosage: 120 MG, DAILY (1/D)
     Dates: start: 20060901
  2. ACTONEL [Concomitant]
     Dosage: 35 MG, UNK
  3. DIOVAN [Concomitant]
  4. PREMPRO [Concomitant]

REACTIONS (3)
  - CONCUSSION [None]
  - INJURY [None]
  - SUBDURAL HAEMATOMA [None]
